FAERS Safety Report 7623310-3 (Version None)
Quarter: 2011Q3

REPORT INFORMATION
  Report Type: 
  Country: None (occurrence: None)
  Receive Date: 20110720
  Receipt Date: 20110707
  Transmission Date: 20111222
  Serious: Yes (Hospitalization, Other)
  Sender: FDA-Public Use
  Company Number: PT-ROCHE-774081

PATIENT
  Sex: Female

DRUGS (1)
  1. XELODA [Suspect]
     Route: 065

REACTIONS (3)
  - DIARRHOEA [None]
  - DEPRESSED LEVEL OF CONSCIOUSNESS [None]
  - WOUND [None]
